FAERS Safety Report 5668159-6 (Version None)
Quarter: 2008Q1

REPORT INFORMATION
  Report Type: 
  Country: None (occurrence: None)
  Receive Date: 20080315
  Receipt Date: 20080215
  Transmission Date: 20080703
  Serious: No
  Sender: FDA-Public Use
  Company Number: US-ABBOTT-08P-163-0438743-00

PATIENT
  Sex: Female
  Weight: 53.572 kg

DRUGS (1)
  1. HUMIRA [Suspect]
     Indication: CROHN'S DISEASE
     Route: 058
     Dates: start: 20060401

REACTIONS (5)
  - CLOSTRIDIAL INFECTION [None]
  - STAPHYLOCOCCAL INFECTION [None]
  - VULVAL DISORDER [None]
  - VULVAL ERYTHEMA [None]
  - VULVOVAGINAL PRURITUS [None]
